FAERS Safety Report 7411547-8 (Version None)
Quarter: 2011Q2

REPORT INFORMATION
  Report Type: 
  Country: None (occurrence: None)
  Receive Date: 20110413
  Receipt Date: 20100825
  Transmission Date: 20111010
  Serious: Yes (Hospitalization)
  Sender: FDA-Public Use
  Company Number: US-BRISTOL-MYERS SQUIBB COMPANY-15250764

PATIENT
  Age: 52 Year
  Sex: Male

DRUGS (3)
  1. DIPHENHYDRAMINE [Concomitant]
     Indication: PREMEDICATION
  2. ERBITUX [Suspect]
     Indication: TONSIL CANCER
     Dosage: TEST DOSE: 20 MG
     Route: 042
     Dates: start: 20100823
  3. ACETAMINOPHEN [Concomitant]
     Indication: PREMEDICATION

REACTIONS (1)
  - ANAPHYLACTIC REACTION [None]
